FAERS Safety Report 15159372 (Version 7)
Quarter: 2018Q4

REPORT INFORMATION
  Report Type: Spontaneous
  Country: CL (occurrence: CL)
  Receive Date: 20180718
  Receipt Date: 20181008
  Transmission Date: 20190204
  Serious: Yes (Life-Threatening, Hospitalization, Other)
  Sender: FDA-Public Use
  Company Number: CL-PFIZER INC-2018287546

PATIENT
  Age: 6 Year
  Sex: Female

DRUGS (19)
  1. TOPIRAMATE. [Concomitant]
     Active Substance: TOPIRAMATE
     Indication: SEIZURE
     Dosage: UNK
     Dates: start: 201610
  2. MIDAZOLAM [Concomitant]
     Active Substance: MIDAZOLAM HYDROCHLORIDE
     Indication: SEIZURE
     Dosage: CONTINUOUS INFUSION
     Dates: start: 201610
  3. TOPIRAMATE. [Concomitant]
     Active Substance: TOPIRAMATE
     Indication: STATUS EPILEPTICUS
  4. NOREPINEPHRINE BITARTRATE. [Suspect]
     Active Substance: NOREPINEPHRINE BITARTRATE
     Indication: HAEMODYNAMIC INSTABILITY
     Dosage: 4 MG, UNK (0.4 MICROG/KG/MINUTE)
  5. VALPROIC ACID. [Interacting]
     Active Substance: VALPROIC ACID
     Indication: EPILEPSY
     Dosage: UNK
  6. LEVETIRACETAM. [Concomitant]
     Active Substance: LEVETIRACETAM
     Indication: SEIZURE
     Dosage: LOAD OF LEVETIRACETAM
     Dates: start: 20161013
  7. AMIKACIN. [Concomitant]
     Active Substance: AMIKACIN
     Indication: ANTIBIOTIC THERAPY
     Dosage: UNK
  8. PROPOFOL. [Interacting]
     Active Substance: PROPOFOL
     Indication: STATUS EPILEPTICUS
     Dosage: 10 MG/KG, CYCLIC(ONCE IN 1 HOUR)
     Route: 042
     Dates: start: 20161016, end: 20161017
  9. KETAMINE [Concomitant]
     Active Substance: KETAMINE
     Indication: STATUS EPILEPTICUS
  10. CLONAZEPAM. [Concomitant]
     Active Substance: CLONAZEPAM
     Indication: STATUS EPILEPTICUS
  11. PHENOBARBITAL. [Concomitant]
     Active Substance: PHENOBARBITAL
     Indication: STATUS EPILEPTICUS
     Dosage: 80 MG/KG, UNK (INCREASE IN PHENOBARBITAL (UP TO))
     Dates: start: 201610
  12. KETAMINE [Concomitant]
     Active Substance: KETAMINE
     Indication: SEIZURE
     Dosage: 2 MG/KG, UNK
     Route: 042
     Dates: start: 20161018
  13. CLONAZEPAM. [Concomitant]
     Active Substance: CLONAZEPAM
     Indication: SEIZURE
     Dosage: UNK
  14. LEVETIRACETAM. [Concomitant]
     Active Substance: LEVETIRACETAM
     Indication: STATUS EPILEPTICUS
  15. ADRENALINE [Suspect]
     Active Substance: EPINEPHRINE
     Indication: HAEMODYNAMIC INSTABILITY
     Dosage: 3 MG, UNK (0.3 MICROG/KG/MINUTE)
  16. PROPOFOL. [Interacting]
     Active Substance: PROPOFOL
     Dosage: 5 MG/KG, UNK (5 MG/KG/HR)
     Route: 042
     Dates: start: 201610, end: 201610
  17. MIDAZOLAM [Concomitant]
     Active Substance: MIDAZOLAM HYDROCHLORIDE
     Indication: STATUS EPILEPTICUS
     Dosage: UNK
     Route: 042
     Dates: start: 20161013
  18. PHENOBARBITAL. [Concomitant]
     Active Substance: PHENOBARBITAL
     Indication: SEIZURE
     Dosage: UNK
     Dates: start: 201610
  19. CEFOTAXIME [Concomitant]
     Active Substance: CEFOTAXIME SODIUM
     Indication: ANTIBIOTIC THERAPY
     Dosage: UNK

REACTIONS (6)
  - Labelled drug-drug interaction medication error [Recovering/Resolving]
  - Lactic acidosis [Recovering/Resolving]
  - Haemodynamic instability [Recovered/Resolved]
  - Condition aggravated [Recovering/Resolving]
  - Overdose [Unknown]
  - Propofol infusion syndrome [Recovered/Resolved]

NARRATIVE: CASE EVENT DATE: 201610
